FAERS Safety Report 9220170 (Version 1)
Quarter: 2013Q2

REPORT INFORMATION
  Report Type: Report from Study
  Country: US (occurrence: US)
  Receive Date: 20130408
  Receipt Date: 20130408
  Transmission Date: 20140414
  Serious: Yes (Hospitalization, Disabling, Other)
  Sender: FDA-Public Use
  Company Number: US-RB-031603-11

PATIENT
  Age: 58 Year
  Sex: Male

DRUGS (4)
  1. SUBOXONE TABLET [Suspect]
     Dosage: PRESCRIBED OVERDOSE
     Route: 060
     Dates: start: 2006, end: 2008
  2. SUBOXONE TABLET [Suspect]
     Indication: DRUG DEPENDENCE
     Route: 060
     Dates: start: 2008, end: 2010
  3. SUBOXONE FILM [Suspect]
     Indication: DRUG DEPENDENCE
     Dosage: SUBOXONE FILM
     Route: 060
     Dates: start: 2010, end: 20130325
  4. NICOTINE [Concomitant]
     Indication: PRODUCT USED FOR UNKNOWN INDICATION
     Dosage: MULTIPLE PACK OF CIGARETTES PER DAY AND NOW 1.5 PACKS OF CIGARETTES PER DAY
     Route: 055

REACTIONS (5)
  - Prescribed overdose [Recovered/Resolved]
  - Localised infection [Recovered/Resolved]
  - Haemorrhage [Recovered/Resolved]
  - Skin ulcer [Recovered/Resolved]
  - Impaired healing [Not Recovered/Not Resolved]
